FAERS Safety Report 7380377-8 (Version None)
Quarter: 2011Q1

REPORT INFORMATION
  Report Type: 
  Country: None (occurrence: None)
  Receive Date: 20110324
  Receipt Date: 20110324
  Transmission Date: 20110831
  Serious: No
  Sender: FDA-Public Use
  Company Number: None

PATIENT
  Sex: Female

DRUGS (3)
  1. ELAVIL [Concomitant]
  2. XANAX [Concomitant]
  3. PEGASYS [Suspect]
     Indication: HEPATITIS C
     Dosage: 180 MCG ONCE WEEKLY SQ
     Route: 058

REACTIONS (17)
  - TREMOR [None]
  - AMNESIA [None]
  - DEPRESSION [None]
  - MUSCLE ATROPHY [None]
  - INSOMNIA [None]
  - ANGER [None]
  - ALOPECIA [None]
  - ANXIETY [None]
  - CONFUSIONAL STATE [None]
  - DRY SKIN [None]
  - DECREASED APPETITE [None]
  - FATIGUE [None]
  - DRY MOUTH [None]
  - MEMORY IMPAIRMENT [None]
  - BONE PAIN [None]
  - RESTLESS LEGS SYNDROME [None]
  - FIBROMYALGIA [None]
